FAERS Safety Report 4923721-0 (Version None)
Quarter: 2006Q1

REPORT INFORMATION
  Report Type: 
  Country: None (occurrence: None)
  Receive Date: 20060227
  Receipt Date: 20060214
  Transmission Date: 20060701
  Serious: Yes (Hospitalization, Other)
  Sender: FDA-Public Use
  Company Number: US-MERCK-0602USA04539

PATIENT
  Age: 69 Year
  Sex: Female
  Weight: 73 kg

DRUGS (6)
  1. FLEXERIL [Concomitant]
     Route: 065
  2. TRIAZOLAM [Concomitant]
     Route: 065
  3. VIOXX [Suspect]
     Indication: ARTHRITIS
     Route: 048
     Dates: start: 20001201, end: 20040901
  4. ATENOLOL [Concomitant]
     Route: 065
  5. NEURONTIN [Concomitant]
     Route: 065
  6. ZANTAC [Concomitant]
     Route: 065

REACTIONS (17)
  - ACUTE MYOCARDIAL INFARCTION [None]
  - ALLERGY TO ARTHROPOD BITE [None]
  - ATRIOVENTRICULAR BLOCK FIRST DEGREE [None]
  - BREAST MASS [None]
  - CHOLECYSTITIS [None]
  - CHRONIC OBSTRUCTIVE PULMONARY DISEASE [None]
  - CORONARY ARTERY DISEASE [None]
  - CORONARY ARTERY OCCLUSION [None]
  - DEPRESSION [None]
  - GASTROOESOPHAGEAL REFLUX DISEASE [None]
  - HYPERGLYCAEMIA [None]
  - INTRACRANIAL ANEURYSM [None]
  - LUNG NEOPLASM [None]
  - MIGRAINE [None]
  - MYOCARDIAL INFARCTION [None]
  - OVERDOSE [None]
  - PULMONARY MASS [None]
